FAERS Safety Report 9516831 (Version 1)
Quarter: 2013Q3

REPORT INFORMATION
  Report Type: Spontaneous
  Country: JP (occurrence: JP)
  Receive Date: 20130911
  Receipt Date: 20130911
  Transmission Date: 20140515
  Serious: Yes (Other)
  Sender: FDA-Public Use
  Company Number: JP-ABBOTT-13P-087-1143687-00

PATIENT
  Age: 41 Year
  Sex: Male

DRUGS (3)
  1. HUMIRA [Suspect]
     Indication: RASH
     Route: 058
     Dates: start: 20120824, end: 20130215
  2. HUMIRA [Suspect]
     Dates: start: 20130308, end: 20130524
  3. HUMIRA [Suspect]
     Dates: start: 20130803, end: 20130817

REACTIONS (1)
  - Chronic inflammatory demyelinating polyradiculoneuropathy [Unknown]
